FAERS Safety Report 15751660 (Version 7)
Quarter: 2020Q1

REPORT INFORMATION
  Report Type: Spontaneous
  Country: JP (occurrence: JP)
  Receive Date: 20181221
  Receipt Date: 20200306
  Transmission Date: 20200409
  Serious: Yes (Death, Life-Threatening, Hospitalization, Other)
  Sender: FDA-Public Use
  Company Number: JP-009507513-1811JPN001104J

PATIENT
  Age: 55 Year
  Sex: Male
  Weight: 61 kg

DRUGS (5)
  1. CODEINE PHOSPHATE HYDRATE [Concomitant]
     Active Substance: CODEINE PHOSPHATE
     Indication: COUGH
     Dosage: 20, TID
     Route: 048
     Dates: start: 20181025, end: 20190308
  2. ADONA [Concomitant]
     Indication: HAEMOPTYSIS
     Dosage: 10, TID
     Route: 048
     Dates: start: 20180920, end: 20190308
  3. TRANSAMIN [Concomitant]
     Active Substance: TRANEXAMIC ACID
     Indication: HAEMOPTYSIS
     Dosage: 250, TID
     Route: 048
     Dates: start: 20181011, end: 20190308
  4. KEYTRUDA [Suspect]
     Active Substance: PEMBROLIZUMAB
     Indication: NON-SMALL CELL LUNG CANCER
     Dosage: 200 MILLIGRAM, Q3W
     Route: 041
     Dates: start: 20181109, end: 20181109
  5. MEDICON [Concomitant]
     Active Substance: DEXTROMETHORPHAN HYDROBROMIDE
     Indication: COUGH
     Dosage: 15, QID
     Route: 048
     Dates: start: 20181004, end: 20190308

REACTIONS (5)
  - Pneumonia lipoid [Fatal]
  - Malignant neoplasm progression [Fatal]
  - Respiratory failure [Fatal]
  - Pyrexia [Unknown]
  - Lung disorder [Recovering/Resolving]

NARRATIVE: CASE EVENT DATE: 20181109
